FAERS Safety Report 7497247-7 (Version None)
Quarter: 2011Q2

REPORT INFORMATION
  Report Type: 
  Country: None (occurrence: None)
  Receive Date: 20110523
  Receipt Date: 20110519
  Transmission Date: 20111010
  Serious: Yes (Other)
  Sender: FDA-Public Use
  Company Number: US-PFIZER INC-2011108380

PATIENT
  Age: 74 Year

DRUGS (3)
  1. ZOLOFT [Suspect]
     Indication: OBSESSIVE-COMPULSIVE DISORDER
     Dosage: 50 MG, 1X/DAY
     Route: 048
     Dates: start: 20100501
  2. PRADAXA [Concomitant]
     Dosage: UNK
  3. ASPIRIN [Concomitant]
     Dosage: UNK

REACTIONS (6)
  - BLOOD SODIUM DECREASED [None]
  - GAIT DISTURBANCE [None]
  - CATATONIA [None]
  - DEMENTIA ALZHEIMER'S TYPE [None]
  - BLOOD BILIRUBIN INCREASED [None]
  - TACHYCARDIA [None]
